FAERS Safety Report 10448418 (Version 1)
Quarter: 2014Q3

REPORT INFORMATION
  Report Type: Spontaneous
  Country: US (occurrence: US)
  Receive Date: 20140911
  Receipt Date: 20140911
  Transmission Date: 20150326
  Serious: Yes (Hospitalization)
  Sender: FDA-Public Use
  Company Number: US-B.I. PHARMACEUTICALS,INC./RIDGEFIELD-2014-BI-42228BP

PATIENT
  Age: 76 Year
  Sex: Female

DRUGS (1)
  1. PRADAXA [Suspect]
     Active Substance: DABIGATRAN ETEXILATE MESYLATE
     Indication: ATRIAL FIBRILLATION
     Dosage: 300 MG
     Route: 048
     Dates: end: 201206

REACTIONS (12)
  - Pneumonia [Unknown]
  - Respiratory failure [Unknown]
  - Pneumoperitoneum [Recovered/Resolved]
  - Encephalopathy [Unknown]
  - Delirium [Unknown]
  - Upper gastrointestinal haemorrhage [Unknown]
  - Sepsis [Unknown]
  - Renal failure acute [Recovered/Resolved]
  - Gastric ulcer [Unknown]
  - Urinary tract infection [Unknown]
  - Dysphagia [Recovered/Resolved]
  - Pneumothorax [Unknown]

NARRATIVE: CASE EVENT DATE: 201206
